FAERS Safety Report 5912311-9 (Version None)
Quarter: 2008Q4

REPORT INFORMATION
  Report Type: 
  Country: None (occurrence: None)
  Receive Date: 20081008
  Receipt Date: 20080122
  Transmission Date: 20090506
  Serious: Yes (Other)
  Sender: FDA-Public Use
  Company Number: AU-ROCHE-543346

PATIENT
  Sex: Male
  Weight: 55 kg

DRUGS (5)
  1. OSELTAMIVIR [Suspect]
     Route: 048
     Dates: start: 20070704, end: 20070710
  2. AMITRIPTYLINE HCL [Suspect]
     Route: 065
     Dates: start: 20070707, end: 20070710
  3. SERTRALINE [Concomitant]
     Dates: end: 20070703
  4. PLAVIX [Concomitant]
     Dates: start: 20070713
  5. ASPIRIN [Concomitant]
     Dates: end: 20070713

REACTIONS (1)
  - DELIRIUM [None]
